FAERS Safety Report 18043015 (Version 1)
Quarter: 2020Q3

REPORT INFORMATION
  Report Type: Spontaneous
  Country: FR (occurrence: FR)
  Receive Date: 20200720
  Receipt Date: 20200720
  Transmission Date: 20201103
  Serious: Yes (Death, Hospitalization)
  Sender: FDA-Public Use
  Company Number: FR-TEVA-2020-FR-1801730

PATIENT
  Age: 63 Year
  Sex: Male
  Weight: 69.9 kg

DRUGS (11)
  1. ORACILLINE [Suspect]
     Active Substance: PENICILLIN V
     Indication: PROPHYLAXIS
     Dosage: 2 MU
     Route: 048
     Dates: start: 20150325, end: 20150410
  2. ATARAX [Concomitant]
     Active Substance: HYDROXYZINE HYDROCHLORIDE
  3. LASILIX [Concomitant]
     Active Substance: FUROSEMIDE
     Indication: HYPERTENSION
     Dosage: 500 MG
     Route: 048
     Dates: start: 20150309, end: 20150410
  4. PANTOPRAZOLE [Suspect]
     Active Substance: PANTOPRAZOLE
     Indication: PROPHYLAXIS AGAINST GASTROINTESTINAL ULCER
     Dosage: 40 MG
     Route: 048
     Dates: start: 20150306, end: 20150326
  5. NEBIVOLOL. [Concomitant]
     Active Substance: NEBIVOLOL
     Indication: HYPERTENSION
     Dosage: 5 MG
     Route: 048
     Dates: start: 20150316, end: 20150407
  6. CAPTOPRIL. [Concomitant]
     Active Substance: CAPTOPRIL
     Dosage: 75 MG
     Route: 048
     Dates: end: 20150312
  7. DIFFU K [Concomitant]
     Active Substance: POTASSIUM CHLORIDE
  8. AMLODIPINE [Concomitant]
     Active Substance: AMLODIPINE BESYLATE
     Dosage: 10 MG
     Route: 048
     Dates: end: 20150331
  9. CETIRIZINE (DICHLORHYDRATE DE) [Concomitant]
     Active Substance: CETIRIZINE HYDROCHLORIDE
  10. SOLIRIS [Suspect]
     Active Substance: ECULIZUMAB
     Indication: HAEMOLYTIC URAEMIC SYNDROME
     Route: 041
     Dates: start: 20150325, end: 20150325
  11. LEDERFOLINE [Concomitant]
     Active Substance: LEUCOVORIN CALCIUM

REACTIONS (1)
  - Drug reaction with eosinophilia and systemic symptoms [Recovering/Resolving]

NARRATIVE: CASE EVENT DATE: 20150327
